FAERS Safety Report 24852451 (Version 1)
Quarter: 2025Q1

REPORT INFORMATION
  Report Type: Spontaneous
  Country: US (occurrence: US)
  Receive Date: 20250116
  Receipt Date: 20250116
  Transmission Date: 20250409
  Serious: Yes (Other)
  Sender: PFIZER
  Company Number: US-PFIZER INC-PV202400083823

PATIENT
  Age: 66 Year
  Sex: Female

DRUGS (2)
  1. TUKYSA [Suspect]
     Active Substance: TUCATINIB
     Indication: Breast cancer metastatic
     Dosage: 200 MG (TAKE ONE 50 MG TABLET WITH ONE 150 MG TABLET), 2X/DAY
  2. TUKYSA [Suspect]
     Active Substance: TUCATINIB
     Dosage: 150 MG (TAKE ONE 150 MG TAB), 2X/DAY

REACTIONS (3)
  - Nephrolithiasis [Unknown]
  - Pain [Unknown]
  - Illness [Unknown]
